FAERS Safety Report 21106194 (Version 1)
Quarter: 2022Q3

REPORT INFORMATION
  Report Type: Spontaneous
  Country: ES (occurrence: ES)
  Receive Date: 20220720
  Receipt Date: 20220720
  Transmission Date: 20221026
  Serious: Yes (Hospitalization, Other)
  Sender: FDA-Public Use
  Company Number: None

PATIENT
  Age: 80 Year
  Sex: Male

DRUGS (10)
  1. RAMIPRIL [Suspect]
     Active Substance: RAMIPRIL
     Indication: Hypertension
     Dosage: 1 TABLET EACH DAY, 28 DF QD
     Route: 065
     Dates: start: 20190408, end: 20210527
  2. METFORMIN HYDROCHLORIDE [Suspect]
     Active Substance: METFORMIN HYDROCHLORIDE
     Indication: Diabetes mellitus
     Dosage: 1 TABLET EVERY 12 HOURS, TABLET 50 DF
     Route: 065
     Dates: start: 20190408, end: 20210331
  3. SPIRONOLACTONE [Suspect]
     Active Substance: SPIRONOLACTONE
     Indication: Atrial fibrillation
     Dosage: 20 DF QD (STRENGTH: 25 MG), 1 TABLET EACH DAY
     Route: 065
     Dates: start: 20210331, end: 20210531
  4. DAPAGLIFLOZIN PROPANEDIOL\METFORMIN HYDROCHLORIDE [Suspect]
     Active Substance: DAPAGLIFLOZIN PROPANEDIOL\METFORMIN HYDROCHLORIDE
     Indication: Diabetes mellitus
     Dosage: 1 TABLET EVERY 12 HOURS, TABLET 1 DF BID, 5 MG/1,000 MG 56 TABLETS
     Route: 065
     Dates: start: 20210331, end: 20210531
  5. BISOPROLOL FUMARATE [Concomitant]
     Active Substance: BISOPROLOL FUMARATE
     Indication: Cardiac failure congestive
  6. AMIODARONE HYDROCHLORIDE [Concomitant]
     Active Substance: AMIODARONE HYDROCHLORIDE
     Indication: Atrial fibrillation
     Dates: end: 20210531
  7. FUROSEMIDE [Concomitant]
     Active Substance: FUROSEMIDE
     Indication: Atrial fibrillation
     Dates: end: 20210531
  8. AMLODIPINE;ATENOLOL [Concomitant]
     Indication: Hypertension
     Dates: end: 20210531
  9. XARELTO [Concomitant]
     Active Substance: RIVAROXABAN
     Indication: Prophylaxis
     Dates: start: 20200505
  10. ACETYLSALICYLIC ACID;ATORVASTATIN [Concomitant]
     Indication: Prophylaxis

REACTIONS (3)
  - Acute kidney injury [Recovered/Resolved]
  - Hyperkalaemia [Recovered/Resolved]
  - Blood creatinine increased [Recovered/Resolved]
